FAERS Safety Report 7776635-5 (Version None)
Quarter: 2011Q3

REPORT INFORMATION
  Report Type: 
  Country: None (occurrence: None)
  Receive Date: 20110926
  Receipt Date: 20110912
  Transmission Date: 20111222
  Serious: Yes (Other)
  Sender: FDA-Public Use
  Company Number: JP-NAPPMUNDI-MAG-2011-0001478

PATIENT
  Sex: Female

DRUGS (25)
  1. OXYCODONE HCL [Suspect]
     Indication: CANCER PAIN
     Dosage: 60 MG, DAILY
     Route: 048
     Dates: start: 20101210
  2. OXYCODONE HCL [Suspect]
     Dosage: 10 MG, DAILY
     Dates: start: 20101213, end: 20101223
  3. PIPERACILLIN SODIUM [Concomitant]
     Indication: PYELONEPHRITIS
     Dosage: UNK
     Route: 065
     Dates: start: 20101211, end: 20101226
  4. LAC-B [Concomitant]
     Indication: PROPHYLAXIS
     Dosage: UNK
     Route: 048
     Dates: start: 20101222
  5. OXYCODONE HCL [Suspect]
     Dosage: 40 MG, DAILY
     Route: 048
     Dates: start: 20101202, end: 20101210
  6. OXYCODONE HCL [Suspect]
     Dosage: 20 MG, DAILY
     Route: 048
     Dates: start: 20101223, end: 20110202
  7. LOXONIN [Concomitant]
     Indication: CANCER PAIN
     Dosage: UNK
     Route: 048
  8. MEXITIL [Concomitant]
     Indication: CANCER PAIN
     Dosage: UNK
     Route: 048
     Dates: end: 20101211
  9. AMOBAN [Concomitant]
     Dosage: UNK
     Route: 048
  10. OXYCODONE HCL [Suspect]
     Indication: CANCER PAIN
     Dosage: 5 MG, DAILY
     Route: 048
     Dates: start: 20101202
  11. LYRICA [Concomitant]
     Indication: CANCER PAIN
     Dosage: UNK
     Route: 048
     Dates: start: 20101211
  12. ALOSENN                            /00476901/ [Concomitant]
     Indication: PROPHYLAXIS
     Dosage: UNK
     Route: 048
     Dates: start: 20101214
  13. ALOXI [Concomitant]
     Indication: PROPHYLAXIS
     Dosage: UNK
     Route: 065
     Dates: start: 20101218, end: 20101218
  14. MAGNESIUM SULFATE [Concomitant]
     Indication: PROPHYLAXIS
     Dosage: UNK
     Route: 048
     Dates: start: 20101215
  15. GEMZAR [Concomitant]
     Dosage: UNK
     Route: 065
     Dates: start: 20101231, end: 20101231
  16. CISPLATIN [Concomitant]
     Indication: MALIGNANT NEOPLASM OF RENAL PELVIS
     Dosage: UNK
     Route: 065
     Dates: start: 20101218, end: 20101218
  17. GRAN [Concomitant]
     Indication: MALIGNANT NEOPLASM OF RENAL PELVIS
     Dosage: UNK
     Route: 065
     Dates: start: 20110104, end: 20110106
  18. OXYCODONE HCL [Suspect]
     Dosage: 5 MG, DAILY
     Dates: start: 20101223, end: 20110202
  19. GEMZAR [Concomitant]
     Indication: MALIGNANT NEOPLASM OF RENAL PELVIS
     Dosage: UNK
     Route: 065
     Dates: start: 20101217, end: 20101217
  20. GEMZAR [Concomitant]
     Dosage: UNK
     Route: 065
     Dates: start: 20101224, end: 20101224
  21. DECADRON [Concomitant]
     Dosage: UNK
     Route: 065
     Dates: start: 20101224
  22. OXYCODONE HCL [Suspect]
     Dosage: 40 MG, DAILY
     Route: 048
     Dates: start: 20101217, end: 20101223
  23. OXYCODONE HCL [Suspect]
     Dosage: 10 MG, AM
     Route: 048
     Dates: start: 20110202
  24. OXYCODONE HCL [Suspect]
     Dosage: 2.5 MG, DAILY
     Route: 048
     Dates: start: 20110202
  25. DECADRON [Concomitant]
     Indication: MALIGNANT NEOPLASM OF RENAL PELVIS
     Dosage: UNK
     Route: 065
     Dates: start: 20101231, end: 20101231

REACTIONS (6)
  - DELIRIUM [None]
  - HYPERKALAEMIA [None]
  - NEUROGENIC BLADDER [None]
  - GASTRIC ULCER [None]
  - PYELONEPHRITIS [None]
  - CYSTITIS [None]
